FAERS Safety Report 6666092-4 (Version None)
Quarter: 2010Q2

REPORT INFORMATION
  Report Type: 
  Country: None (occurrence: None)
  Receive Date: 20100402
  Receipt Date: 20100318
  Transmission Date: 20101027
  Serious: No
  Sender: FDA-Public Use
  Company Number: US-ROXANE LABORATORIES, INC.-2010-RO-00298RO

PATIENT
  Sex: Female

DRUGS (2)
  1. METHADONE HCL [Suspect]
     Indication: PAIN
     Dosage: 30 MG
     Route: 048
  2. LORTAB [Concomitant]

REACTIONS (2)
  - EUPHORIC MOOD [None]
  - PRODUCT SOLUBILITY ABNORMAL [None]
